FAERS Safety Report 10063526 (Version 1)
Quarter: 2014Q2

REPORT INFORMATION
  Report Type: Spontaneous
  Country: US (occurrence: US)
  Receive Date: 20140407
  Receipt Date: 20140407
  Transmission Date: 20141212
  Serious: Yes (Other)
  Sender: FDA-Public Use
  Company Number: US-ELI_LILLY_AND_COMPANY-US201403009813

PATIENT
  Age: 48 Year
  Sex: Female

DRUGS (9)
  1. HUMALOG LISPRO [Suspect]
     Indication: DIABETES MELLITUS
     Dosage: UNK, PRN
     Route: 058
     Dates: start: 2005
  2. CLONIDINE [Concomitant]
     Dosage: 0.3 MG, QID
  3. NORVASC [Concomitant]
     Dosage: 10 MG, BID
  4. METOPROLOL [Concomitant]
     Dosage: 50 MG, UNK
  5. METOPROLOL [Concomitant]
     Dosage: 100 MG, PRN
  6. KLONOPIN [Concomitant]
     Dosage: 0.5 MG, TID
  7. PROZAC [Concomitant]
     Dosage: 20 MG, TID
  8. SEROQUEL [Concomitant]
     Dosage: 100 MG, EACH EVENING
  9. AMBIEN [Concomitant]
     Dosage: 10 MG, EACH EVENING

REACTIONS (1)
  - Malignant hypertension [Unknown]
